FAERS Safety Report 6417367-5 (Version None)
Quarter: 2009Q4

REPORT INFORMATION
  Report Type: 
  Country: None (occurrence: None)
  Receive Date: 20091027
  Receipt Date: 20091027
  Transmission Date: 20100525
  Serious: No
  Sender: FDA-Public Use
  Company Number: None

PATIENT
  Age: 12 Year
  Sex: Female
  Weight: 43.9989 kg

DRUGS (1)
  1. VERAMYST [Suspect]
     Indication: HOUSE DUST ALLERGY
     Dosage: 2 SPRAYS/ NOSTRIL 1/ DAY NASAL
     Route: 045
     Dates: start: 20091018, end: 20091025

REACTIONS (2)
  - HEADACHE [None]
  - NASAL DISCOMFORT [None]
